FAERS Safety Report 4962293-1 (Version None)
Quarter: 2006Q1

REPORT INFORMATION
  Report Type: 
  Country: None (occurrence: None)
  Receive Date: 20060329
  Receipt Date: 20060320
  Transmission Date: 20060701
  Serious: Yes (Hospitalization, Disabling, Other)
  Sender: FDA-Public Use
  Company Number: 2006-02-1978

PATIENT
  Age: 71 Year
  Sex: Male
  Weight: 56.6996 kg

DRUGS (16)
  1. TEMODAR [Suspect]
     Indication: GLIOMA
     Dosage: ORAL
     Route: 048
     Dates: start: 20051109, end: 20051223
  2. RADIATION THERAPY [Suspect]
     Indication: GLIOMA
     Dosage: 5040 CGY X-RAY THERAPY
     Dates: start: 20051109, end: 20051123
  3. DILANTIN [Suspect]
     Indication: CONVULSION
     Dosage: SEE IMAGE
     Route: 048
     Dates: start: 20050101, end: 20060201
  4. DILANTIN [Suspect]
     Indication: GLIOMA
     Dosage: SEE IMAGE
     Route: 048
     Dates: start: 20050101, end: 20060201
  5. DILANTIN [Suspect]
     Indication: CONVULSION
     Dosage: SEE IMAGE
     Route: 048
     Dates: start: 20060201
  6. DILANTIN [Suspect]
     Indication: GLIOMA
     Dosage: SEE IMAGE
     Route: 048
     Dates: start: 20060201
  7. METHYLPREDNISOLONE [Suspect]
     Indication: GLIOMA
     Dosage: SEE IMAGE
     Route: 048
     Dates: start: 20060130, end: 20060130
  8. METHYLPREDNISOLONE [Suspect]
     Indication: GLIOMA
     Dosage: SEE IMAGE
     Route: 048
     Dates: start: 20060130, end: 20060222
  9. METHYLPREDNISOLONE [Suspect]
     Indication: GLIOMA
     Dosage: SEE IMAGE
     Route: 048
     Dates: start: 20060222, end: 20060314
  10. METHYLPREDNISOLONE [Suspect]
     Indication: GLIOMA
     Dosage: SEE IMAGE
     Route: 048
     Dates: start: 20060314
  11. BACTRIM DS [Concomitant]
  12. PROSCAR [Concomitant]
  13. ACTONEL [Concomitant]
  14. CALCIUM GLUCONATE [Concomitant]
  15. SENOKOT [Concomitant]
  16. OMEPRAZOLE [Concomitant]

REACTIONS (23)
  - ANOREXIA [None]
  - ASTHENIA [None]
  - BRADYPHRENIA [None]
  - CONSTIPATION [None]
  - COORDINATION ABNORMAL [None]
  - DEHYDRATION [None]
  - DEPRESSION [None]
  - DIFFICULTY IN WALKING [None]
  - DRUG DISPENSING ERROR [None]
  - DRUG LEVEL BELOW THERAPEUTIC [None]
  - DRUG TOXICITY [None]
  - DYSGEUSIA [None]
  - FALL [None]
  - FLAT AFFECT [None]
  - GASTRITIS [None]
  - GASTROOESOPHAGEAL REFLUX DISEASE [None]
  - HEADACHE [None]
  - HIATUS HERNIA [None]
  - HICCUPS [None]
  - INAPPROPRIATE ANTIDIURETIC HORMONE SECRETION [None]
  - MYOPATHY STEROID [None]
  - NEUROLOGICAL SYMPTOM [None]
  - WEIGHT DECREASED [None]
